FAERS Safety Report 4868132-1 (Version None)
Quarter: 2005Q4

REPORT INFORMATION
  Report Type: 
  Country: None (occurrence: None)
  Receive Date: 20051229
  Receipt Date: 20051213
  Transmission Date: 20060501
  Serious: Yes (Hospitalization)
  Sender: FDA-Public Use
  Company Number: PHEH2005US13879

PATIENT
  Age: 26 Year
  Sex: Female
  Weight: 49.886 kg

DRUGS (2)
  1. TRILEPTAL [Suspect]
     Indication: CONVULSION
     Dosage: 1200 MG, BID
     Route: 048
     Dates: start: 20040224, end: 20051227
  2. ZONEGRAN [Concomitant]

REACTIONS (4)
  - ABORTION SPONTANEOUS [None]
  - CONDITION AGGRAVATED [None]
  - CONVULSION [None]
  - HYPONATRAEMIA [None]
